FAERS Safety Report 24067388 (Version 1)
Quarter: 2024Q3

REPORT INFORMATION
  Report Type: Spontaneous
  Country: US (occurrence: US)
  Receive Date: 20240709
  Receipt Date: 20240709
  Transmission Date: 20241017
  Serious: No
  Sender: AMGEN
  Company Number: US-AMGEN-USASP2024132432

PATIENT
  Sex: Female

DRUGS (2)
  1. TEPEZZA [Suspect]
     Active Substance: TEPROTUMUMAB-TRBW
     Indication: Product used for unknown indication
     Dosage: UNK, Q3WK, FIRST INFUSION
     Route: 042
     Dates: start: 20240524
  2. TEPEZZA [Suspect]
     Active Substance: TEPROTUMUMAB-TRBW
     Dosage: UNK, Q3WK, SECOND INFUSION
     Route: 042
     Dates: start: 20240614

REACTIONS (6)
  - Dehydration [Unknown]
  - Ageusia [Unknown]
  - Nausea [Unknown]
  - Tinnitus [Unknown]
  - Tongue ulceration [Unknown]
  - Vomiting [Unknown]

NARRATIVE: CASE EVENT DATE: 20240101
